FAERS Safety Report 6700055-5 (Version None)
Quarter: 2010Q2

REPORT INFORMATION
  Report Type: 
  Country: None (occurrence: None)
  Receive Date: 20100428
  Receipt Date: 20100422
  Transmission Date: 20101027
  Serious: Yes (Hospitalization)
  Sender: FDA-Public Use
  Company Number: BR-BRISTOL-MYERS SQUIBB COMPANY-15076821

PATIENT
  Age: 78 Year
  Sex: Male

DRUGS (3)
  1. CEFEPIME [Suspect]
     Indication: INFECTION
     Dosage: INTERRUPTED ON 17-APR-2010
     Dates: start: 20100409
  2. METRONIDAZOLE [Suspect]
  3. TYLENOL-500 [Suspect]

REACTIONS (7)
  - ANAEMIA [None]
  - APHASIA [None]
  - DECREASED APPETITE [None]
  - MENTAL DISORDER [None]
  - PYREXIA [None]
  - RENAL FAILURE [None]
  - SPLENOMEGALY [None]
